FAERS Safety Report 6168245-0 (Version None)
Quarter: 2009Q2

REPORT INFORMATION
  Report Type: 
  Country: None (occurrence: None)
  Receive Date: 20090423
  Receipt Date: 20090423
  Transmission Date: 20091009
  Serious: Yes (Hospitalization, Disabling)
  Sender: FDA-Public Use
  Company Number: None

PATIENT
  Sex: Female
  Weight: 97.5234 kg

DRUGS (1)
  1. CHLORAPREP ONE-STEP [Suspect]
     Indication: RASH
     Dates: start: 20090402, end: 20090420

REACTIONS (2)
  - DERMATITIS ALLERGIC [None]
  - INFUSION SITE INFLAMMATION [None]
